FAERS Safety Report 17204840 (Version 1)
Quarter: 2019Q4

REPORT INFORMATION
  Report Type: Report from Study
  Country: US (occurrence: US)
  Receive Date: 20191226
  Receipt Date: 20191226
  Transmission Date: 20200122
  Serious: Yes (Other)
  Sender: FDA-Public Use
  Company Number: US-BRISTOL-MYERS SQUIBB COMPANY-BMS-2019-122268

PATIENT
  Age: 50 Year
  Sex: Female
  Weight: 77.1 kg

DRUGS (3)
  1. NIVOLUMAB [Suspect]
     Active Substance: NIVOLUMAB
     Indication: PRODUCT USED FOR UNKNOWN INDICATION
     Dosage: UNK, Q4WK (NIVOLUMAB ALONE-MAINTENANCE)
     Route: 065
  2. NIVOLUMAB [Suspect]
     Active Substance: NIVOLUMAB
     Indication: MALIGNANT MELANOMA
     Dosage: UNK UNK, Q3WK ( HAD 4 TREATMENTS WITH YERVOY)
     Route: 065
     Dates: start: 20190213
  3. YERVOY [Suspect]
     Active Substance: IPILIMUMAB
     Indication: MALIGNANT MELANOMA
     Dosage: UNK, Q3WK ( FOR 4 TREATMENTS WITH NIVOLUMAB)
     Route: 065
     Dates: start: 20190213

REACTIONS (6)
  - Cataract [Unknown]
  - Ocular hyperaemia [Unknown]
  - Vision blurred [Unknown]
  - Eye swelling [Unknown]
  - Eye pain [Unknown]
  - Retinal detachment [Unknown]

NARRATIVE: CASE EVENT DATE: 20191214
